FAERS Safety Report 7896827-4 (Version None)
Quarter: 2011Q4

REPORT INFORMATION
  Report Type: 
  Country: None (occurrence: None)
  Receive Date: 20111104
  Receipt Date: 20111104
  Transmission Date: 20120403
  Serious: No
  Sender: FDA-Public Use
  Company Number: None

PATIENT
  Age: 71 Year
  Sex: Male
  Weight: 72.5755 kg

DRUGS (1)
  1. WELLBUTRIN XL [Suspect]
     Indication: ANTIDEPRESSANT THERAPY
     Dosage: ONE TABLET DAILY ORAL
     Route: 048
     Dates: start: 20110929, end: 20111001

REACTIONS (6)
  - HEADACHE [None]
  - ANXIETY [None]
  - ABDOMINAL PAIN UPPER [None]
  - INSOMNIA [None]
  - NAUSEA [None]
  - DECREASED APPETITE [None]
